FAERS Safety Report 23338245 (Version 2)
Quarter: 2024Q3

REPORT INFORMATION
  Report Type: Report from Study
  Country: GB (occurrence: GB)
  Receive Date: 20231226
  Receipt Date: 20240823
  Transmission Date: 20241017
  Serious: Yes (Other)
  Sender: SANDOZ
  Company Number: GB-SANDOZ-SDZ2023GB071469

PATIENT
  Sex: Male

DRUGS (2)
  1. OMNITROPE [Suspect]
     Active Substance: SOMATROPIN
     Dosage: 0.9 MG, QD, 10 MG/1.5 ML SOLUTION FOR INJECTION IN CARTRIDGE
     Route: 058
  2. OMNITROPE [Suspect]
     Active Substance: SOMATROPIN
     Indication: Hyperpituitarism
     Dosage: 0.90 MG, QD, 15 MG/1.5 ML SOLUTION FOR INJECTION IN CARTRIDGE
     Route: 058

REACTIONS (3)
  - Autism spectrum disorder [Unknown]
  - Vision blurred [Unknown]
  - Product prescribing error [Unknown]
